FAERS Safety Report 8089612-4 (Version None)
Quarter: 2012Q1

REPORT INFORMATION
  Report Type: 
  Country: None (occurrence: None)
  Receive Date: 20120128
  Receipt Date: 20110622
  Transmission Date: 20120608
  Serious: Yes (Hospitalization)
  Sender: FDA-Public Use
  Company Number: US-ABBOTT-11P-163-0725900-00

PATIENT
  Sex: Female

DRUGS (10)
  1. FOLIC ACID [Concomitant]
     Indication: VITAMIN SUPPLEMENTATION
     Dosage: 1 MG 6 DAYS A WEEK
  2. VICODIN [Concomitant]
     Indication: PAIN
     Dosage: 5 MG BID
  3. CELEXA [Concomitant]
     Indication: ANXIETY
     Dosage: 20 MG DAILY
  4. FLONASE [Concomitant]
     Indication: HYPERSENSITIVITY
  5. IBUPROFEN [Concomitant]
     Indication: PAIN
  6. HUMIRA [Suspect]
     Dates: start: 20110503
  7. METHOTREXATE [Concomitant]
     Indication: RHEUMATOID ARTHRITIS
     Dosage: 2.5 MG/6 TABS PER WEE
  8. TRAMADOL HCL [Concomitant]
     Indication: PAIN
     Dosage: 50MG QID
  9. HUMIRA [Suspect]
     Indication: RHEUMATOID ARTHRITIS
     Dates: start: 20110301
  10. ZYRTEC [Concomitant]
     Indication: HYPERSENSITIVITY

REACTIONS (3)
  - MALAISE [None]
  - RASH [None]
  - CYSTITIS [None]
